FAERS Safety Report 5610250-4 (Version None)
Quarter: 2008Q1

REPORT INFORMATION
  Report Type: 
  Country: None (occurrence: None)
  Receive Date: 20080131
  Receipt Date: 20080123
  Transmission Date: 20080703
  Serious: Yes (Life-Threatening, Hospitalization)
  Sender: FDA-Public Use
  Company Number: IT-GENENTECH-254724

PATIENT
  Sex: Female

DRUGS (3)
  1. NUTROPIN AQ [Suspect]
     Indication: CRANIOPHARYNGIOMA
     Dosage: 0.4 MG, 7/WEEK
     Route: 058
     Dates: start: 20070530
  2. ASPIRIN [Concomitant]
     Indication: DRUG USE FOR UNKNOWN INDICATION
     Dosage: 1 CAPFUL, QD
     Route: 048
     Dates: start: 20061230
  3. LASIX [Concomitant]
     Indication: DRUG USE FOR UNKNOWN INDICATION
     Dosage: 1 CAPFUL, QD
     Route: 048
     Dates: start: 20070530

REACTIONS (2)
  - CONVULSION [None]
  - RESPIRATORY DISTRESS [None]
